FAERS Safety Report 10855033 (Version 1)
Quarter: 2015Q1

REPORT INFORMATION
  Report Type: Spontaneous
  Country: US (occurrence: None)
  Receive Date: 20150218
  Receipt Date: 20150218
  Transmission Date: 20150721
  Serious: No
  Sender: FDA-Public Use
  Company Number: None

PATIENT
  Age: 60 Year
  Sex: Male
  Weight: 111.13 kg

DRUGS (1)
  1. TAMSULOSIN HCL [Suspect]
     Active Substance: TAMSULOSIN
     Indication: BENIGN PROSTATIC HYPERPLASIA
     Dosage: 1 PILL, TAKEN BY MOUTH
     Dates: start: 20141212, end: 20141223

REACTIONS (10)
  - Insomnia [None]
  - Penis disorder [None]
  - Constipation [None]
  - Rash [None]
  - Spontaneous penile erection [None]
  - Muscular weakness [None]
  - Nasal congestion [None]
  - Headache [None]
  - Pruritus [None]
  - Ejaculation disorder [None]

NARRATIVE: CASE EVENT DATE: 20141223
